FAERS Safety Report 10005490 (Version 4)
Quarter: 2014Q2

REPORT INFORMATION
  Report Type: Spontaneous
  Country: US (occurrence: US)
  Receive Date: 20140313
  Receipt Date: 20140627
  Transmission Date: 20141212
  Serious: Yes (Other)
  Sender: FDA-Public Use
  Company Number: US-ROCHE-1355036

PATIENT
  Age: 51 Year
  Sex: Female

DRUGS (6)
  1. XELODA [Suspect]
     Indication: HEPATIC CANCER
     Dosage: 4 DF BID
     Route: 048
     Dates: start: 20140106, end: 20140621
  2. XELODA [Suspect]
     Dosage: 3 DF BID
     Route: 048
     Dates: start: 20140207
  3. XELODA [Suspect]
     Route: 048
     Dates: end: 20140621
  4. CYCLOPHOSPHAMIDE [Concomitant]
     Route: 048
     Dates: start: 20140106, end: 20140621
  5. MILK THISTLE [Concomitant]
  6. VITAMIN B6 [Concomitant]

REACTIONS (9)
  - Dyspnoea [Not Recovered/Not Resolved]
  - Abdominal distension [Not Recovered/Not Resolved]
  - Joint swelling [Not Recovered/Not Resolved]
  - Nausea [Recovering/Resolving]
  - Diarrhoea [Recovering/Resolving]
  - Palmar-plantar erythrodysaesthesia syndrome [Recovering/Resolving]
  - Pyrexia [Recovering/Resolving]
  - Skin exfoliation [Recovering/Resolving]
  - Drug ineffective [Unknown]
